FAERS Safety Report 6042804-8 (Version None)
Quarter: 2009Q1

REPORT INFORMATION
  Report Type: 
  Country: None (occurrence: None)
  Receive Date: 20090119
  Receipt Date: 20081218
  Transmission Date: 20090719
  Serious: No
  Sender: FDA-Public Use
  Company Number: US-BAYER-200841517NA

PATIENT
  Age: 39 Year
  Sex: Female

DRUGS (6)
  1. YAZ [Suspect]
     Indication: CONTRACEPTION
     Route: 048
  2. YAZ [Suspect]
     Route: 048
     Dates: start: 20081201
  3. CELEBREX [Concomitant]
     Indication: ARTHRITIS
     Route: 048
  4. ADDRELL XR [Concomitant]
     Indication: ATTENTION DEFICIT/HYPERACTIVITY DISORDER
     Route: 048
  5. MULTI-VITAMIN [Concomitant]
     Indication: UNEVALUABLE EVENT
     Route: 048
  6. DROSPARINONE (DROSPIRENONE) [Concomitant]

REACTIONS (3)
  - ANXIETY [None]
  - INSOMNIA [None]
  - NO ADVERSE EVENT [None]
